FAERS Safety Report 4397565-5 (Version None)
Quarter: 2004Q3

REPORT INFORMATION
  Report Type: 
  Country: None (occurrence: None)
  Receive Date: 20040708
  Receipt Date: 20040628
  Transmission Date: 20050211
  Serious: Yes (Other)
  Sender: FDA-Public Use
  Company Number: 2004-DE-03542GD

PATIENT
  Sex: Male

DRUGS (5)
  1. CYCLOPHOSPHAMIDE [Suspect]
     Indication: PLASMACYTOMA
  2. PREDNISONE TAB [Suspect]
     Indication: PLASMACYTOMA
  3. MELPHALAN (MELPHALAN) [Suspect]
     Indication: PLASMACYTOMA
  4. VINCRISTINE [Suspect]
     Indication: PLASMACYTOMA
  5. CARMUSTINE [Suspect]
     Indication: PLASMACYTOMA

REACTIONS (5)
  - BONE PAIN [None]
  - MARROW HYPERPLASIA [None]
  - METASTASES TO BONE [None]
  - MYELOMA RECURRENCE [None]
  - PLASMACYTOMA [None]
